FAERS Safety Report 4831132-1 (Version None)
Quarter: 2005Q4

REPORT INFORMATION
  Report Type: 
  Country: None (occurrence: None)
  Receive Date: 20051116
  Receipt Date: 20051116
  Transmission Date: 20060501
  Serious: Yes (Hospitalization)
  Sender: FDA-Public Use
  Company Number: None

PATIENT
  Sex: Male
  Weight: 84 kg

DRUGS (2)
  1. CETUXIMAB (400MG/M2) [Suspect]
     Indication: OESOPHAGEAL CARCINOMA
     Dosage: 400   LOADING  IV
     Route: 042
     Dates: start: 20051019
  2. CETUXIMAB (250MD/M2) [Suspect]
     Indication: OESOPHAGEAL CARCINOMA
     Dosage: 250   WEEKLY   IV
     Route: 042
     Dates: start: 20051026, end: 20051109

REACTIONS (4)
  - DRUG TOXICITY [None]
  - LETHARGY [None]
  - PAIN [None]
  - SKIN DISORDER [None]
